FAERS Safety Report 18409591 (Version 2)
Quarter: 2020Q4

REPORT INFORMATION
  Report Type: Spontaneous
  Country: JP (occurrence: JP)
  Receive Date: 20201021
  Receipt Date: 20201029
  Transmission Date: 20210114
  Serious: Yes (Other)
  Sender: FDA-Public Use
  Company Number: JP-ABBVIE-20P-087-3615748-00

PATIENT
  Age: 89 Year
  Sex: Male

DRUGS (3)
  1. LEUPLIN SR [Suspect]
     Active Substance: LEUPROLIDE ACETATE
     Indication: PRODUCT USED FOR UNKNOWN INDICATION
     Dosage: 11.25 MILLIGRAM, Q3MONTHS
     Route: 065
  2. LEUPLIN [Suspect]
     Active Substance: LEUPROLIDE ACETATE
     Indication: PROSTATE CANCER
     Dosage: 3.75 MILLIGRAM, Q3MONTHS
     Route: 058
     Dates: start: 201909
  3. LEUPLIN SR [Suspect]
     Active Substance: LEUPROLIDE ACETATE
     Dosage: 11.25 MILLIGRAM, Q3MONTHS
     Route: 065
     Dates: start: 20201014

REACTIONS (3)
  - Inappropriate schedule of product administration [Unknown]
  - Prostatic specific antigen increased [Unknown]
  - Throat cancer [Unknown]

NARRATIVE: CASE EVENT DATE: 201909
